FAERS Safety Report 4674481-2 (Version None)
Quarter: 2005Q2

REPORT INFORMATION
  Report Type: 
  Country: None (occurrence: None)
  Receive Date: 20050526
  Receipt Date: 20050516
  Transmission Date: 20051028
  Serious: Yes (Hospitalization)
  Sender: FDA-Public Use
  Company Number: US-JNJFOC-20050504334

PATIENT
  Age: 59 Year
  Sex: Female
  Weight: 56.7 kg

DRUGS (5)
  1. DURAGESIC-100 [Suspect]
     Route: 062
     Dates: start: 20040301
  2. DURAGESIC-100 [Suspect]
     Route: 062
     Dates: start: 20040301
  3. DURAGESIC-100 [Suspect]
     Route: 062
     Dates: start: 20040301
  4. SYNTHROID [Concomitant]
  5. XANAX [Concomitant]

REACTIONS (1)
  - KIDNEY INFECTION [None]
